FAERS Safety Report 6453077-6 (Version None)
Quarter: 2009Q4

REPORT INFORMATION
  Report Type: 
  Country: None (occurrence: None)
  Receive Date: 20091124
  Receipt Date: 20090526
  Transmission Date: 20100525
  Serious: No
  Sender: FDA-Public Use
  Company Number: US-ABBOTT-09P-163-0576106-00

PATIENT
  Sex: Female
  Weight: 83.99 kg

DRUGS (4)
  1. TRICOR [Suspect]
     Indication: BLOOD CHOLESTEROL INCREASED
     Dates: start: 20090429
  2. NIASPAN [Suspect]
     Indication: BLOOD CHOLESTEROL INCREASED
     Route: 048
     Dates: start: 20090525
  3. CRESTOR [Suspect]
     Indication: BLOOD CHOLESTEROL INCREASED
     Dates: start: 20090429, end: 20090525
  4. FLEXERIL [Concomitant]
     Indication: BACK PAIN
     Dosage: 1-3/DAY.  TAKES 1 AT HS
     Dates: start: 20090429

REACTIONS (4)
  - CONSTIPATION [None]
  - ERYTHEMA [None]
  - PARAESTHESIA [None]
  - SKIN BURNING SENSATION [None]
